FAERS Safety Report 7184344-9 (Version None)
Quarter: 2010Q4

REPORT INFORMATION
  Report Type: 
  Country: None (occurrence: None)
  Receive Date: 20101222
  Receipt Date: 20101216
  Transmission Date: 20110411
  Serious: Yes (Other)
  Sender: FDA-Public Use
  Company Number: BE-BRISTOL-MYERS SQUIBB COMPANY-15302227

PATIENT
  Age: 34 Year
  Sex: Female
  Weight: 58 kg

DRUGS (7)
  1. ORENCIA [Suspect]
     Indication: RHEUMATOID ARTHRITIS
     Dosage: DOSE ALSO TAKEN AS EVERY 4 WEEKS.
     Route: 042
     Dates: start: 20090805
  2. LEDERTREXATE [Concomitant]
     Dates: start: 20040101
  3. PREDNISOLONE [Concomitant]
     Dates: start: 20040101
  4. SERTRALINE HYDROCHLORIDE [Concomitant]
  5. NAPROXEN [Concomitant]
  6. FOLIC ACID [Concomitant]
  7. ARAVA [Concomitant]

REACTIONS (5)
  - CARDIAC FAILURE [None]
  - CARDIOMYOPATHY [None]
  - HEADACHE [None]
  - NERVOUSNESS [None]
  - VOMITING [None]
